FAERS Safety Report 13941621 (Version 1)
Quarter: 2017Q3

REPORT INFORMATION
  Report Type: Report from Study
  Country: US (occurrence: US)
  Receive Date: 20170906
  Receipt Date: 20170906
  Transmission Date: 20171127
  Serious: Yes (Hospitalization, Other)
  Sender: FDA-Public Use
  Company Number: US-ACTELION-A-NJ2017-158830

PATIENT
  Age: 54 Year
  Sex: Female

DRUGS (7)
  1. OPSUMIT [Suspect]
     Active Substance: MACITENTAN
     Indication: PULMONARY ARTERIAL HYPERTENSION
     Dosage: 10 MG, QD
     Route: 048
     Dates: start: 20170713
  2. ELIQUIS [Concomitant]
     Active Substance: APIXABAN
  3. LASIX [Concomitant]
     Active Substance: FUROSEMIDE
  4. ADVAIR HFA [Concomitant]
     Active Substance: FLUTICASONE PROPIONATE\SALMETEROL XINAFOATE
  5. BREO ELLIPTA [Concomitant]
     Active Substance: FLUTICASONE FUROATE\VILANTEROL TRIFENATATE
  6. POTASSIUM [Concomitant]
     Active Substance: POTASSIUM
  7. PROTONIX [Concomitant]
     Active Substance: PANTOPRAZOLE SODIUM

REACTIONS (7)
  - Transfusion [Unknown]
  - Spinal cord injury lumbar [Unknown]
  - Anaemia [Unknown]
  - Blood magnesium decreased [Unknown]
  - Seizure [Recovered/Resolved]
  - Blood calcium decreased [Unknown]
  - Spinal cord injury thoracic [Unknown]

NARRATIVE: CASE EVENT DATE: 20170815
